FAERS Safety Report 15952050 (Version 1)
Quarter: 2019Q1

REPORT INFORMATION
  Report Type: Spontaneous
  Country: FR (occurrence: FR)
  Receive Date: 20190212
  Receipt Date: 20190212
  Transmission Date: 20190417
  Serious: Yes (Other)
  Sender: FDA-Public Use
  Company Number: FR-BIOGEN-2019BI00694675

PATIENT
  Age: 37 Year
  Sex: Female
  Weight: 60 kg

DRUGS (3)
  1. TYSABRI [Suspect]
     Active Substance: NATALIZUMAB
     Indication: RELAPSING-REMITTING MULTIPLE SCLEROSIS
     Route: 042
     Dates: start: 2007
  2. TRAMADOL BASE [Concomitant]
     Active Substance: TRAMADOL
     Indication: PRODUCT USED FOR UNKNOWN INDICATION
     Route: 048
     Dates: start: 20180625
  3. BIPROFENID [Concomitant]
     Active Substance: KETOPROFEN
     Indication: PRODUCT USED FOR UNKNOWN INDICATION
     Route: 048
     Dates: start: 20180618

REACTIONS (2)
  - Precancerous cells present [Recovered/Resolved with Sequelae]
  - Cervical dysplasia [Recovered/Resolved with Sequelae]

NARRATIVE: CASE EVENT DATE: 20180611
